FAERS Safety Report 16895948 (Version 1)
Quarter: 2019Q4

REPORT INFORMATION
  Report Type: Spontaneous
  Country: US (occurrence: US)
  Receive Date: 20190814
  Receipt Date: 20190814
  Transmission Date: 20200122
  Serious: Yes (Hospitalization)
  Sender: FDA-Public Use
  Company Number: None

PATIENT
  Age: 66 Year
  Sex: Male

DRUGS (12)
  1. ASPIRIN. [Concomitant]
     Active Substance: ASPIRIN
  2. ESCITALOPRAM [Concomitant]
     Active Substance: ESCITALOPRAM OXALATE
  3. METFORMIN [Concomitant]
     Active Substance: METFORMIN HYDROCHLORIDE
  4. ZELBORAF [Suspect]
     Active Substance: VEMURAFENIB
     Indication: MALIGNANT MELANOMA
     Route: 048
     Dates: start: 20190727
  5. MULTIPLE VIT [Concomitant]
  6. PROBIOTIC [Concomitant]
     Active Substance: PROBIOTICS NOS
  7. FUROSEMIDE. [Concomitant]
     Active Substance: FUROSEMIDE
  8. MORPHINE [Concomitant]
     Active Substance: MORPHINE
  9. COTELLIC [Suspect]
     Active Substance: COBIMETINIB
     Indication: MALIGNANT MELANOMA
     Dosage: ?          OTHER FREQUENCY:BID FOR 21 DAYS;?
     Route: 048
     Dates: start: 20190727
  10. ATORVASTATIN [Concomitant]
     Active Substance: ATORVASTATIN
  11. LISINOPRIL. [Concomitant]
     Active Substance: LISINOPRIL
  12. DIPHENHYDRAM [Concomitant]

REACTIONS (20)
  - Dizziness [None]
  - Heart rate abnormal [None]
  - Metastases to liver [None]
  - Rash [None]
  - Ammonia increased [None]
  - Fatigue [None]
  - Asthenia [None]
  - Therapy cessation [None]
  - Decreased appetite [None]
  - Metastases to lung [None]
  - Diarrhoea [None]
  - Metastases to central nervous system [None]
  - Balance disorder [None]
  - Candida infection [None]
  - Oral pain [None]
  - Arrhythmia [None]
  - Fall [None]
  - Taste disorder [None]
  - Stomatitis radiation [None]
  - Depression [None]

NARRATIVE: CASE EVENT DATE: 20190811
